FAERS Safety Report 9462416 (Version 1)
Quarter: 2013Q3

REPORT INFORMATION
  Report Type: Spontaneous
  Country: AT (occurrence: AT)
  Receive Date: 20130816
  Receipt Date: 20130816
  Transmission Date: 20140515
  Serious: Yes (Other)
  Sender: FDA-Public Use
  Company Number: PHHY2013AT086087

PATIENT
  Age: 25 Year
  Sex: Female
  Weight: 92.1 kg

DRUGS (1)
  1. SUMATRIPTAN [Suspect]
     Indication: MIGRAINE

REACTIONS (2)
  - Cardiovascular insufficiency [Recovered/Resolved]
  - Chest discomfort [Recovered/Resolved]
